FAERS Safety Report 20460084 (Version 1)
Quarter: 2022Q1

REPORT INFORMATION
  Report Type: Spontaneous
  Country: US (occurrence: US)
  Receive Date: 20220211
  Receipt Date: 20220211
  Transmission Date: 20220423
  Serious: No
  Sender: FDA-Public Use
  Company Number: US-HORIZON THERAPEUTICS-HZN-2021-009982

PATIENT
  Sex: Female

DRUGS (2)
  1. TEPEZZA [Suspect]
     Active Substance: TEPROTUMUMAB-TRBW
     Indication: Endocrine ophthalmopathy
     Route: 065
  2. TEPEZZA [Suspect]
     Active Substance: TEPROTUMUMAB-TRBW
     Indication: Diplopia

REACTIONS (6)
  - Epistaxis [Unknown]
  - Illness [Unknown]
  - Diarrhoea [Unknown]
  - Drug ineffective [Unknown]
  - Nausea [Unknown]
  - Headache [Unknown]
